FAERS Safety Report 6875875-7 (Version None)
Quarter: 2010Q3

REPORT INFORMATION
  Report Type: 
  Country: None (occurrence: None)
  Receive Date: 20100727
  Receipt Date: 20100714
  Transmission Date: 20110219
  Serious: Yes (Hospitalization)
  Sender: FDA-Public Use
  Company Number: GB-PFIZER INC-2010088122

PATIENT
  Age: 55 Year
  Sex: Male

DRUGS (5)
  1. SUTENT [Suspect]
     Dosage: 37.5 MG, UNK
     Route: 048
  2. FERROUS SULFATE TAB [Concomitant]
     Indication: ANAEMIA
     Dosage: 200 MG, 3X/DAY
     Route: 048
  3. PHYLLOCONTIN [Concomitant]
     Indication: ASTHMA
     Dosage: 700 MG, 2X/DAY
     Route: 048
  4. SALBUTAMOL [Concomitant]
     Indication: ASTHMA
     Dosage: 100 UG, AS NEEDED
     Route: 055
  5. SERETIDE [Concomitant]
     Indication: ASTHMA
     Dosage: 500 UG, 2X/DAY
     Route: 055

REACTIONS (4)
  - CONVULSION [None]
  - DYSKINESIA [None]
  - INFLAMMATION [None]
  - LOSS OF CONSCIOUSNESS [None]
